FAERS Safety Report 18042396 (Version 2)
Quarter: 2022Q1

REPORT INFORMATION
  Report Type: Spontaneous
  Country: PT (occurrence: PT)
  Receive Date: 20200720
  Receipt Date: 20220316
  Transmission Date: 20220423
  Serious: Yes (Other)
  Sender: FDA-Public Use
  Company Number: PT-EMA-DD-20200710-KUMARVN_P-111727

PATIENT
  Age: 38 Year
  Sex: Female

DRUGS (24)
  1. CAPECITABINE [Suspect]
     Active Substance: CAPECITABINE
     Indication: Breast cancer stage III
     Dosage: UNK
     Route: 065
     Dates: start: 201609, end: 201701
  2. CAPECITABINE [Suspect]
     Active Substance: CAPECITABINE
     Dosage: UNK
     Route: 065
     Dates: start: 201702, end: 201709
  3. CAPECITABINE [Suspect]
     Active Substance: CAPECITABINE
     Dosage: UNK
     Route: 065
     Dates: start: 201710, end: 201903
  4. DOCETAXEL [Suspect]
     Active Substance: DOCETAXEL
     Indication: Breast cancer stage III
     Dosage: UNK 1 EVERY 3 WEEKS, Q3W (4 CYCLES)
     Route: 065
  5. DOXORUBICIN [Suspect]
     Active Substance: DOXORUBICIN
     Indication: Breast cancer stage III
     Dosage: UNK 1 EVERY 3 WEEKS (Q3W 4 CYCLES)
     Route: 065
  6. EXEMESTANE [Suspect]
     Active Substance: EXEMESTANE
     Indication: Breast cancer stage III
     Dosage: UNK
     Route: 065
     Dates: start: 201807, end: 201903
  7. LETROZOLE [Suspect]
     Active Substance: LETROZOLE
     Indication: Breast cancer stage III
     Dosage: UNK
     Route: 065
     Dates: start: 201805, end: 201806
  8. CISPLATIN [Suspect]
     Active Substance: CISPLATIN
     Indication: Breast cancer stage III
     Dosage: UNK
     Route: 065
     Dates: start: 201804, end: 201804
  9. CYCLOPHOSPHAMIDE [Suspect]
     Active Substance: CYCLOPHOSPHAMIDE
     Indication: Breast cancer stage III
     Dosage: UNK, Q3W (4 CYCLES)
     Route: 065
  10. DENOSUMAB [Suspect]
     Active Substance: DENOSUMAB
     Indication: Product used for unknown indication
     Dosage: UNK, (4 WEEK)
     Route: 065
     Dates: start: 20180301
  11. DENOSUMAB [Suspect]
     Active Substance: DENOSUMAB
     Dosage: UNK
     Route: 065
     Dates: start: 201804, end: 201804
  12. DENOSUMAB [Suspect]
     Active Substance: DENOSUMAB
     Dosage: UNK
     Route: 065
     Dates: start: 201805, end: 201806
  13. EVEROLIMUS [Suspect]
     Active Substance: EVEROLIMUS
     Indication: Breast cancer stage III
     Dosage: UNK
     Route: 065
     Dates: start: 201807, end: 201903
  14. GOSERELIN [Suspect]
     Active Substance: GOSERELIN
     Indication: Product used for unknown indication
     Dosage: UNK
     Route: 065
     Dates: start: 201710, end: 201803
  15. GOSERELIN [Suspect]
     Active Substance: GOSERELIN
     Dosage: UNK
     Route: 065
     Dates: start: 201805, end: 201806
  16. GOSERELIN [Suspect]
     Active Substance: GOSERELIN
     Dosage: UNK
     Route: 065
     Dates: start: 201807, end: 201903
  17. LAPATINIB [Suspect]
     Active Substance: LAPATINIB
     Indication: Breast cancer stage III
     Dosage: UNK
     Route: 065
     Dates: start: 201702, end: 201709
  18. LAPATINIB [Suspect]
     Active Substance: LAPATINIB
     Dosage: UNK
     Route: 065
     Dates: start: 201710, end: 201803
  19. LAPATINIB [Suspect]
     Active Substance: LAPATINIB
     Dosage: UNK
     Route: 065
     Dates: start: 201805, end: 201806
  20. LAPATINIB [Suspect]
     Active Substance: LAPATINIB
     Dosage: UNK
     Route: 065
     Dates: start: 201807, end: 201903
  21. TRASTUZUMAB [Suspect]
     Active Substance: TRASTUZUMAB
     Indication: Breast cancer stage III
     Dosage: UNK 1 EVERY 3 WEEKS (UNK UNK, Q3W)
     Route: 065
  22. TRASTUZUMAB [Suspect]
     Active Substance: TRASTUZUMAB
     Dosage: UNK
     Route: 065
     Dates: start: 201710, end: 201803
  23. TRASTUZUMAB [Suspect]
     Active Substance: TRASTUZUMAB
     Dosage: UNK
     Route: 065
     Dates: start: 201804, end: 201804
  24. TRASTUZUMAB [Suspect]
     Active Substance: TRASTUZUMAB
     Dosage: UNK
     Route: 065
     Dates: start: 201805, end: 201806

REACTIONS (8)
  - Metastases to lymph nodes [Unknown]
  - Therapeutic response decreased [Unknown]
  - Inappropriate schedule of product administration [Unknown]
  - Metastases to skin [Unknown]
  - Malignant neoplasm progression [Unknown]
  - Skin lesion [Unknown]
  - Breast cancer stage III [Unknown]
  - Dermatitis [Unknown]

NARRATIVE: CASE EVENT DATE: 20130901
